FAERS Safety Report 8157510 (Version 3)
Quarter: 2013Q1

REPORT INFORMATION
  Report Type: Spontaneous
  Country: US (occurrence: US)
  Receive Date: 20110927
  Receipt Date: 20130218
  Transmission Date: 20140127
  Serious: Yes (Other)
  Sender: FDA-Public Use
  Company Number: US-ASTRAZENECA-2011SE12543

PATIENT
  Sex: 0
  Weight: 95.5 kg

DRUGS (16)
  1. SEROQUEL [Suspect]
     Route: 048
     Dates: start: 20041203
  2. SEROQUEL [Suspect]
     Route: 048
     Dates: start: 20060912
  3. TRAZADONE HCL [Concomitant]
     Dosage: TAKE ONE TABLET BY MOUTH AT BEDTIME(WITH FOOD OR SNACK)MAY INCREASE TO 300MG (3 TABLETS) AS DIRECTED
     Route: 048
     Dates: start: 20060912
  4. CHLORDIAZEPOXIDE [Concomitant]
     Route: 048
     Dates: start: 20041129
  5. OLANZAPINE [Concomitant]
     Route: 048
     Dates: start: 20011212
  6. SERTRALINE HCL [Concomitant]
     Route: 048
     Dates: start: 20011212
  7. SERTRALINE HCL [Concomitant]
     Route: 048
     Dates: start: 20040914
  8. MIRTAZAPINE [Concomitant]
     Route: 048
     Dates: start: 20040914
  9. ARIPIPRAZOLE [Concomitant]
     Dates: start: 20100811
  10. PANTOPRAZOLE [Concomitant]
     Dates: start: 20100827
  11. BISACODYL [Concomitant]
     Dosage: TAKE FOUR TABLETS BY MOUTH ONE TIME
     Route: 048
     Dates: start: 20100827
  12. VENLAFAXINE HYDROCHLORIDE [Concomitant]
     Route: 048
     Dates: start: 20020412
  13. SILDENAFIL CITRATE [Concomitant]
     Dosage: TAKE 0.5 TABLET ONE TIME FOR ONE DAY, TAKE HALF TO ONE TABLET FOR ONE DAY
     Route: 048
     Dates: start: 20020116
  14. SILDENAFIL CITRATE [Concomitant]
     Dosage: AS DIRECTED DO NOT EXCEED ONE TABLET IN ANY 24 HOURS PERIOD
     Route: 048
     Dates: start: 20020213
  15. RABEPRAZOLE [Concomitant]
     Route: 048
     Dates: start: 20020213
  16. BUSPIRONE HCL [Concomitant]
     Route: 048
     Dates: start: 20011212

REACTIONS (3)
  - Pancreatitis [Unknown]
  - Diabetic coma [Unknown]
  - Type 2 diabetes mellitus [Unknown]
